FAERS Safety Report 9080562 (Version 1)
Quarter: 2013Q1

REPORT INFORMATION
  Report Type: Report from Study
  Country: US (occurrence: US)
  Receive Date: 20130130
  Receipt Date: 20130130
  Transmission Date: 20140127
  Serious: No
  Sender: FDA-Public Use
  Company Number: US-ABBOTT-12P-163-0959821-00

PATIENT
  Age: 69 Year
  Sex: Female

DRUGS (6)
  1. HUMIRA 40 MG/0.8 ML PEN [Suspect]
     Indication: CROHN^S DISEASE
     Dosage: 4 INJECTIONS- LOADING DOSE
     Route: 050
     Dates: start: 20120615, end: 20120615
  2. HUMIRA 40 MG/0.8 ML PEN [Suspect]
     Dosage: 2 PENS
     Dates: start: 20120629, end: 20120629
  3. HUMIRA 40 MG/0.8 ML PEN [Suspect]
     Dates: start: 20120710, end: 20120710
  4. HUMIRA 40 MG/0.8 ML PEN [Suspect]
     Dates: start: 20120722
  5. HUMIRA 40 MG/0.8 ML PEN [Suspect]
  6. LISINOPRIL [Concomitant]
     Indication: PRODUCT USED FOR UNKNOWN INDICATION

REACTIONS (5)
  - Trichorrhexis [Not Recovered/Not Resolved]
  - Drug ineffective [Unknown]
  - Crohn^s disease [Unknown]
  - Nausea [Unknown]
  - Nausea [Unknown]
